FAERS Safety Report 26149387 (Version 1)
Quarter: 2025Q4

REPORT INFORMATION
  Report Type: Spontaneous
  Country: US (occurrence: US)
  Receive Date: 20251212
  Receipt Date: 20251212
  Transmission Date: 20260117
  Serious: Yes (Life-Threatening, Hospitalization)
  Sender: STRIDES
  Company Number: US-STRIDES PHARMA UK LTD.-2025SP015391

PATIENT
  Age: 54 Year
  Sex: Male

DRUGS (1)
  1. PREDNISOLONE [Suspect]
     Active Substance: PREDNISOLONE
     Indication: Bursitis
     Dosage: UNK
     Route: 048

REACTIONS (3)
  - Catecholamine crisis [Recovering/Resolving]
  - Tumour haemorrhage [Recovering/Resolving]
  - Phaeochromocytoma [Recovering/Resolving]
